FAERS Safety Report 4590155-0 (Version None)
Quarter: 2005Q1

REPORT INFORMATION
  Report Type: 
  Country: None (occurrence: None)
  Receive Date: 20050218
  Receipt Date: 20050218
  Transmission Date: 20050727
  Serious: Yes (Other)
  Sender: FDA-Public Use
  Company Number: None

PATIENT
  Sex: Male
  Weight: 94 kg

DRUGS (8)
  1. RITUXAN [Suspect]
     Indication: CHRONIC LYMPHOCYTIC LEUKAEMIA
     Dosage: 800 MG IV Q 4 WEEKS
     Route: 042
     Dates: start: 20050118
  2. RITUXAN [Suspect]
     Indication: CHRONIC LYMPHOCYTIC LEUKAEMIA
     Dosage: 800 MG IV Q 4 WEEKS
     Route: 042
     Dates: start: 20050215
  3. RITUXAN [Suspect]
  4. DAPSONE [Concomitant]
  5. VALTREX [Concomitant]
  6. DIFLUCAN [Concomitant]
  7. COMPAZINE [Concomitant]
  8. ATVAN [Concomitant]

REACTIONS (1)
  - URTICARIA [None]
